FAERS Safety Report 10172714 (Version 1)
Quarter: 2014Q2

REPORT INFORMATION
  Report Type: Spontaneous
  Country: US (occurrence: None)
  Receive Date: 20140513
  Receipt Date: 20140513
  Transmission Date: 20141212
  Serious: Yes (Other)
  Sender: FDA-Public Use
  Company Number: 104926

PATIENT
  Age: 63 Year
  Sex: Female
  Weight: 73.48 kg

DRUGS (2)
  1. HYPROMELLOSE .2%, TETRAHYDROZOLINE HCL .05%, ZINC SULFATE .25%,(ROHTO) [Suspect]
     Indication: OCULAR HYPERAEMIA
     Dosage: 2X/DAY, 5 DAYS
     Dates: start: 20140420, end: 20140425
  2. HYPROMELLOSE .2%, TETRAHYDROZOLINE HCL .05%, ZINC SULFATE .25%,(ROHTO) [Suspect]
     Indication: EYE IRRITATION
     Dosage: 2X/DAY, 5 DAYS
     Dates: start: 20140420, end: 20140425

REACTIONS (3)
  - Ocular hyperaemia [None]
  - Eye discharge [None]
  - Eye irritation [None]
